FAERS Safety Report 11071069 (Version 1)
Quarter: 2015Q2

REPORT INFORMATION
  Report Type: Report from Study
  Country: BR (occurrence: BR)
  Receive Date: 20150428
  Receipt Date: 20150428
  Transmission Date: 20150821
  Serious: Yes (Hospitalization)
  Sender: FDA-Public Use
  Company Number: BR-ROCHE-1569152

PATIENT
  Age: 52 Year
  Sex: Female
  Weight: 92.12 kg

DRUGS (4)
  1. ONBRIZE [Concomitant]
     Active Substance: INDACATEROL MALEATE
     Route: 065
  2. BUSONID [Concomitant]
     Active Substance: BUDESONIDE
  3. DILTIAZEM HYDROCHLORIDE. [Suspect]
     Active Substance: DILTIAZEM HYDROCHLORIDE
     Indication: PRODUCT USED FOR UNKNOWN INDICATION
     Route: 065
     Dates: start: 20150327
  4. XOLAIR [Suspect]
     Active Substance: OMALIZUMAB
     Indication: ASTHMA
     Route: 065
     Dates: start: 201010

REACTIONS (3)
  - Gastrointestinal infection [Recovering/Resolving]
  - Heart rate increased [Recovering/Resolving]
  - Pruritus [Recovering/Resolving]

NARRATIVE: CASE EVENT DATE: 201411
